FAERS Safety Report 6325240-6 (Version None)
Quarter: 2009Q3

REPORT INFORMATION
  Report Type: 
  Country: None (occurrence: None)
  Receive Date: 20090824
  Receipt Date: 20090625
  Transmission Date: 20100115
  Serious: No
  Sender: FDA-Public Use
  Company Number: US-ABBOTT-09P-163-0582404-00

PATIENT
  Sex: Male
  Weight: 95.34 kg

DRUGS (8)
  1. NIASPAN [Suspect]
     Indication: HIGH DENSITY LIPOPROTEIN DECREASED
     Dates: start: 20090624
  2. NIASPAN [Suspect]
     Route: 048
     Dates: start: 20090501, end: 20090611
  3. GLYBURIDE [Concomitant]
     Indication: DIABETES MELLITUS
     Route: 048
  4. METFORMIN HCL [Concomitant]
     Indication: DIABETES MELLITUS
     Route: 048
  5. LUMIGAN [Concomitant]
     Indication: GLAUCOMA
     Route: 047
  6. AMLODIPINE [Concomitant]
     Indication: HYPERTENSION
     Route: 048
  7. BENAZEPRIL HYDROCHLORIDE [Concomitant]
     Indication: HYPERTENSION
     Route: 048
  8. TIMOPTIC [Concomitant]
     Indication: GLAUCOMA
     Route: 047

REACTIONS (2)
  - INCORRECT DRUG ADMINISTRATION DURATION [None]
  - PARAESTHESIA [None]
